FAERS Safety Report 11648829 (Version 1)
Quarter: 2015Q4

REPORT INFORMATION
  Report Type: Spontaneous
  Country: GR (occurrence: DE)
  Receive Date: 20151021
  Receipt Date: 20151021
  Transmission Date: 20160304
  Serious: Yes (Other)
  Sender: FDA-Public Use
  Company Number: JP-WARNER CHILCOTT 2015-001826

PATIENT
  Age: 61 Year
  Sex: Female
  Weight: 59.14 kg

DRUGS (9)
  1. PROCORALAN [Concomitant]
     Active Substance: IVABRADINE
     Dates: start: 2011
  2. RANITIDINE [Concomitant]
     Active Substance: RANITIDINE\RANITIDINE HYDROCHLORIDE
     Dates: start: 1991
  3. HUMIRA [Concomitant]
     Active Substance: ADALIMUMAB
     Dates: start: 2000
  4. DESLORATADINE. [Concomitant]
     Active Substance: DESLORATADINE
     Dates: start: 2014
  5. EFEROX [Concomitant]
     Active Substance: LEVOTHYROXINE SODIUM
     Dates: start: 1991
  6. SURGAM [Concomitant]
     Active Substance: TIAPROFENIC ACID
  7. ACTONEL [Suspect]
     Active Substance: RISEDRONATE SODIUM
     Indication: OSTEOPOROSIS
     Route: 048
     Dates: start: 2000, end: 20130124
  8. PREDNISOLONE. [Concomitant]
     Active Substance: PREDNISOLONE
     Dates: start: 1990
  9. METEX [Concomitant]
     Active Substance: METFORMIN HYDROCHLORIDE
     Dates: start: 1992

REACTIONS (7)
  - Nausea [None]
  - Constipation [None]
  - Abdominal pain [None]
  - Chest discomfort [None]
  - Contraindicated drug administered [None]
  - Abdominal distension [None]
  - Gastrointestinal hypomotility [None]
